FAERS Safety Report 6709918-8 (Version None)
Quarter: 2010Q2

REPORT INFORMATION
  Report Type: 
  Country: None (occurrence: None)
  Receive Date: 20100503
  Receipt Date: 20100503
  Transmission Date: 20101027
  Serious: No
  Sender: FDA-Public Use
  Company Number: None

PATIENT

DRUGS (2)
  1. CHILDREN'S BENADRYL ALLERGY [Suspect]
  2. ZYRTEC [Suspect]

REACTIONS (5)
  - ASTERIXIS [None]
  - HEAD TITUBATION [None]
  - INSOMNIA [None]
  - MUSCLE TWITCHING [None]
  - PRODUCT QUALITY ISSUE [None]
